FAERS Safety Report 7685185-6 (Version None)
Quarter: 2011Q3

REPORT INFORMATION
  Report Type: 
  Country: None (occurrence: None)
  Receive Date: 20110816
  Receipt Date: 20110811
  Transmission Date: 20111222
  Serious: Yes (Other)
  Sender: FDA-Public Use
  Company Number: CA-PFIZER INC-2011184973

PATIENT
  Sex: Male

DRUGS (1)
  1. VARENICLINE TARTRATE [Suspect]
     Dosage: UNK
     Dates: start: 20110725, end: 20110101

REACTIONS (6)
  - HYPERSOMNIA [None]
  - ANGER [None]
  - AGGRESSION [None]
  - FRUSTRATION [None]
  - MENTAL DISORDER [None]
  - DISTURBANCE IN ATTENTION [None]
